FAERS Safety Report 5237533-4 (Version None)
Quarter: 2007Q1

REPORT INFORMATION
  Report Type: 
  Country: None (occurrence: None)
  Receive Date: 20070213
  Receipt Date: 20070202
  Transmission Date: 20070707
  Serious: Yes (Other)
  Sender: FDA-Public Use
  Company Number: GB-PFIZER INC-2007001002

PATIENT
  Age: 79 Year
  Sex: Female

DRUGS (3)
  1. XALATAN [Suspect]
     Route: 047
  2. DETRUSITOL [Suspect]
     Indication: BLADDER SPHINCTER ATONY
     Route: 048
  3. ANALGESICS [Concomitant]

REACTIONS (4)
  - ABNORMAL SENSATION IN EYE [None]
  - EYE PAIN [None]
  - LACRIMATION INCREASED [None]
  - OCULAR HYPERAEMIA [None]
